FAERS Safety Report 5987557-4 (Version None)
Quarter: 2008Q4

REPORT INFORMATION
  Report Type: 
  Country: None (occurrence: None)
  Receive Date: 20081209
  Receipt Date: 20081127
  Transmission Date: 20090506
  Serious: Yes (Hospitalization)
  Sender: FDA-Public Use
  Company Number: FR-SANOFI-SYNTHELABO-A02200803568

PATIENT
  Sex: Male

DRUGS (13)
  1. MABTHERA [Concomitant]
     Indication: POLYCHONDRITIS
     Dosage: UNK
     Route: 048
  2. SEROPLEX [Concomitant]
     Indication: DEPRESSION
     Dosage: UNK
     Route: 048
  3. FOSAMAX [Concomitant]
     Indication: BONE DENSITY DECREASED
     Dosage: UNK
     Route: 048
  4. XATRAL [Concomitant]
     Indication: BENIGN PROSTATIC HYPERPLASIA
     Dosage: UNK
     Route: 048
  5. DIFFU K [Concomitant]
     Indication: HYPOKALAEMIA
     Dosage: UNK
     Route: 048
  6. CORTANCYL [Concomitant]
     Indication: POLYCHONDRITIS
     Dosage: UNK
     Route: 048
  7. SPASFON [Concomitant]
     Indication: DRUG USE FOR UNKNOWN INDICATION
     Dosage: UNK
     Route: 048
  8. DAFALGAN [Concomitant]
     Indication: PAIN
     Dosage: UNK
     Route: 048
  9. TRAMADOL HCL [Concomitant]
     Indication: PAIN
     Dosage: UNK
     Route: 048
  10. LOVENOX [Interacting]
     Indication: DRUG USE FOR UNKNOWN INDICATION
     Dosage: UNK
     Route: 058
  11. PREVISCAN [Interacting]
     Indication: DRUG USE FOR UNKNOWN INDICATION
     Dosage: UNK
     Route: 048
  12. DANATROL [Suspect]
     Indication: MYELODYSPLASTIC SYNDROME
     Route: 048
  13. CALCIUM VIT D [Concomitant]
     Indication: DRUG USE FOR UNKNOWN INDICATION
     Dosage: UNK
     Route: 065

REACTIONS (3)
  - DRUG INTERACTION [None]
  - HAEMATURIA [None]
  - INTERNATIONAL NORMALISED RATIO INCREASED [None]
